FAERS Safety Report 18471322 (Version 3)
Quarter: 2025Q4

REPORT INFORMATION
  Report Type: Spontaneous
  Country: US (occurrence: US)
  Receive Date: 20201105
  Receipt Date: 20251118
  Transmission Date: 20260118
  Serious: Yes (Death, Other)
  Sender: PURDUE
  Company Number: US-PURDUE PHARMA-USA-2020-0167427

PATIENT
  Sex: Female

DRUGS (2)
  1. OXYCONTIN [Suspect]
     Active Substance: OXYCODONE HYDROCHLORIDE
     Indication: Knee operation
     Dosage: UNK
     Route: 048
  2. FENTANYL [Suspect]
     Active Substance: FENTANYL
     Indication: Product used for unknown indication
     Dosage: UNK
     Route: 065

REACTIONS (2)
  - Drug dependence [Fatal]
  - Overdose [Fatal]

NARRATIVE: CASE EVENT DATE: 20200828
